FAERS Safety Report 18744294 (Version 1)
Quarter: 2021Q1

REPORT INFORMATION
  Report Type: Spontaneous
  Country: US (occurrence: US)
  Receive Date: 20210114
  Receipt Date: 20210114
  Transmission Date: 20210419
  Serious: No
  Sender: FDA-Public Use
  Company Number: US-009507513-2101USA000109

PATIENT
  Sex: Female

DRUGS (2)
  1. MAXALT?MLT [Suspect]
     Active Substance: RIZATRIPTAN BENZOATE
     Indication: MIGRAINE
     Dosage: 10 MILLIGRAM, PRN
     Route: 048
     Dates: start: 2007, end: 2020
  2. MAXALT?MLT [Suspect]
     Active Substance: RIZATRIPTAN BENZOATE
     Dosage: AT LEAST 4 TABLETS
     Route: 048
     Dates: start: 2020

REACTIONS (6)
  - Drug ineffective [Not Recovered/Not Resolved]
  - Product taste abnormal [Unknown]
  - Poor quality product administered [Unknown]
  - Feeling abnormal [Not Recovered/Not Resolved]
  - Overdose [Unknown]
  - Product solubility abnormal [Unknown]

NARRATIVE: CASE EVENT DATE: 2020
